FAERS Safety Report 5554097-6 (Version None)
Quarter: 2007Q4

REPORT INFORMATION
  Report Type: 
  Country: None (occurrence: None)
  Receive Date: 20071213
  Receipt Date: 20071203
  Transmission Date: 20080405
  Serious: Yes (Other)
  Sender: FDA-Public Use
  Company Number: IL-AMGEN-UK256245

PATIENT
  Sex: Female

DRUGS (4)
  1. NEULASTIM [Suspect]
     Indication: CHEMOTHERAPY
  2. ADRIAMYCIN PFS [Concomitant]
  3. CYCLOPHOSPHAMIDE [Concomitant]
  4. PACLITAXEL [Concomitant]

REACTIONS (2)
  - DYSPNOEA [None]
  - WHITE BLOOD CELL COUNT DECREASED [None]
